FAERS Safety Report 17894946 (Version 1)
Quarter: 2020Q2

REPORT INFORMATION
  Report Type: Spontaneous
  Country: SA (occurrence: SA)
  Receive Date: 20200615
  Receipt Date: 20200615
  Transmission Date: 20200714
  Serious: Yes (Other)
  Sender: FDA-Public Use
  Company Number: SA-SUN PHARMACEUTICAL INDUSTRIES LTD-2020RR-250081

PATIENT
  Age: 50 Year
  Sex: Male

DRUGS (16)
  1. LENALIDOMIDE [Suspect]
     Active Substance: LENALIDOMIDE
     Indication: PLASMA CELL MYELOMA
     Dosage: 5 MILLIGRAM, QOD
     Route: 048
  2. CARFILZOMIB [Suspect]
     Active Substance: CARFILZOMIB
     Indication: PLASMA CELL MYELOMA
     Route: 065
  3. DARATUMUMB [Suspect]
     Active Substance: DARATUMUMAB
     Indication: PLASMA CELL MYELOMA
     Dosage: SIX CYCLES
     Route: 065
  4. BORTEZOMIB. [Suspect]
     Active Substance: BORTEZOMIB
     Indication: PLASMA CELL MYELOMA
     Dosage: 2 CYCLES
     Route: 065
  5. DEXAMETHASONE. [Suspect]
     Active Substance: DEXAMETHASONE
     Indication: PLASMA CELL MYELOMA
     Dosage: 2 CYCLES
     Route: 065
  6. VENETOCLAX. [Suspect]
     Active Substance: VENETOCLAX
     Dosage: 200 MILLIGRAM, DAILY
     Route: 065
  7. MELPHALAN. [Concomitant]
     Active Substance: MELPHALAN
     Indication: BONE MARROW CONDITIONING REGIMEN
     Dosage: 140 MILLIGRAM/SQ. METER, UNK
     Route: 065
  8. BORTEZOMIB. [Suspect]
     Active Substance: BORTEZOMIB
     Dosage: EVERY OTHER WEEK
     Route: 065
  9. THALIDOMIDE [Suspect]
     Active Substance: THALIDOMIDE
     Indication: PLASMA CELL MYELOMA
     Dosage: 2 CYCLES
     Route: 065
  10. VINCRISTINE [Suspect]
     Active Substance: VINCRISTINE
     Indication: PLASMA CELL MYELOMA
     Dosage: SIX CYCLES
     Route: 065
  11. CYCLOPHOSPHAMIDE. [Suspect]
     Active Substance: CYCLOPHOSPHAMIDE
     Indication: PRODUCT USED FOR UNKNOWN INDICATION
     Dosage: UNK
     Route: 065
  12. DEXAMETHASONE. [Suspect]
     Active Substance: DEXAMETHASONE
     Dosage: 40 MILLIGRAM, WEEKLY
     Route: 065
     Dates: start: 20190316
  13. VENETOCLAX. [Suspect]
     Active Substance: VENETOCLAX
     Indication: PLASMA CELL MYELOMA
     Dosage: 50 MILLIGRAM, DAILY
     Route: 065
     Dates: start: 20190316
  14. CISPLATIN. [Suspect]
     Active Substance: CISPLATIN
     Indication: PLASMA CELL MYELOMA
     Route: 065
  15. CARFILZOMIB [Suspect]
     Active Substance: CARFILZOMIB
     Dosage: 56 MILLIGRAM/SQ. METER ON DAYS 1, 8 AND 22
     Route: 065
     Dates: start: 20190316
  16. ETOLUZUMAB [Suspect]
     Active Substance: ELOTUZUMAB
     Indication: PLASMA CELL MYELOMA
     Dosage: 5 CYCLES
     Route: 065

REACTIONS (2)
  - Therapy partial responder [Unknown]
  - Disease progression [Unknown]
